FAERS Safety Report 21942529 (Version 1)
Quarter: 2023Q1

REPORT INFORMATION
  Report Type: Report from Study
  Country: US (occurrence: US)
  Receive Date: 20230202
  Receipt Date: 20230202
  Transmission Date: 20230418
  Serious: No
  Sender: FDA-Public Use
  Company Number: US-EXELIXIS-CABO-22058310

PATIENT
  Age: 58 Year
  Sex: Male

DRUGS (1)
  1. CABOMETYX [Suspect]
     Active Substance: CABOZANTINIB S-MALATE
     Indication: Malignant neoplasm of renal pelvis
     Dosage: 60 MG, QD
     Route: 048

REACTIONS (16)
  - Nasal dryness [Unknown]
  - Acne [Unknown]
  - Nasopharyngitis [Recovered/Resolved]
  - Glossitis [Unknown]
  - Erythema [Unknown]
  - Blister [Unknown]
  - Vocal cord disorder [Unknown]
  - Oral pain [Unknown]
  - Gastrointestinal motility disorder [Unknown]
  - Dysphonia [Unknown]
  - Pain in extremity [Unknown]
  - Blood pressure increased [Recovering/Resolving]
  - Palmar-plantar erythrodysaesthesia syndrome [Unknown]
  - Fatigue [Unknown]
  - Nausea [Unknown]
  - Off label use [Unknown]

NARRATIVE: CASE EVENT DATE: 20221210
